FAERS Safety Report 7291651-8 (Version None)
Quarter: 2011Q1

REPORT INFORMATION
  Report Type: 
  Country: None (occurrence: None)
  Receive Date: 20110210
  Receipt Date: 20110210
  Transmission Date: 20110831
  Serious: Yes (Other)
  Sender: FDA-Public Use
  Company Number: None

PATIENT
  Age: 91 Year
  Sex: Female
  Weight: 43.9989 kg

DRUGS (2)
  1. PRADAXA [Suspect]
     Indication: ATRIAL FIBRILLATION
     Dosage: 1 CAPSULE -150 MG- 2/DAILY PO
     Route: 048
     Dates: start: 20110128, end: 20110208
  2. PRADAXA [Suspect]
     Indication: CEREBROVASCULAR ACCIDENT
     Dosage: 1 CAPSULE -150 MG- 2/DAILY PO
     Route: 048
     Dates: start: 20110128, end: 20110208

REACTIONS (2)
  - VOMITING [None]
  - PRODUCT SUBSTITUTION ISSUE [None]
